FAERS Safety Report 6954187-7 (Version None)
Quarter: 2010Q3

REPORT INFORMATION
  Report Type: 
  Country: None (occurrence: None)
  Receive Date: 20100829
  Receipt Date: 20100707
  Transmission Date: 20110219
  Serious: No
  Sender: FDA-Public Use
  Company Number: US-ABBOTT-10P-163-0656160-00

PATIENT
  Sex: Male
  Weight: 95.34 kg

DRUGS (8)
  1. NIASPAN [Suspect]
     Indication: BLOOD CHOLESTEROL INCREASED
  2. NIASPAN [Suspect]
  3. PRAVASTATIN [Concomitant]
     Indication: PRODUCT USED FOR UNKNOWN INDICATION
  4. ASPIRIN [Concomitant]
     Indication: PRODUCT USED FOR UNKNOWN INDICATION
  5. ZESTRIL (OBTAINED FROM INDIA) [Concomitant]
     Indication: PRODUCT USED FOR UNKNOWN INDICATION
  6. NAPRILIX (OBTAINED FROM INDIA) [Concomitant]
     Indication: PRODUCT USED FOR UNKNOWN INDICATION
  7. AVANDAMET [Concomitant]
     Indication: PRODUCT USED FOR UNKNOWN INDICATION
     Dosage: DAILY
  8. AVANDAMET [Concomitant]

REACTIONS (3)
  - BLOOD GLUCOSE INCREASED [None]
  - HEAD DISCOMFORT [None]
  - WEIGHT INCREASED [None]
